FAERS Safety Report 17135447 (Version 2)
Quarter: 2019Q4

REPORT INFORMATION
  Report Type: Report from Study
  Country: FR (occurrence: FR)
  Receive Date: 20191210
  Receipt Date: 20191210
  Transmission Date: 20200122
  Serious: Yes (Hospitalization)
  Sender: FDA-Public Use
  Company Number: FR-JNJFOC-20191145405

PATIENT
  Age: 76 Year
  Sex: Male
  Weight: 69 kg

DRUGS (2)
  1. REMICADE [Suspect]
     Active Substance: INFLIXIMAB
     Dosage: 350 MG, CYCLIC, EVERY 8 WEEKS; CYCLICAL
     Route: 042
     Dates: start: 20190510, end: 20190510
  2. REMICADE [Suspect]
     Active Substance: INFLIXIMAB
     Indication: CROHN^S DISEASE
     Dosage: 350 MG, CYCLIC, EVERY 8 WEEKS; CYCLICAL
     Route: 042
     Dates: start: 20161115

REACTIONS (3)
  - Infusion related reaction [Recovered/Resolved]
  - Hyperthermia [Recovered/Resolved]
  - Rash [Recovered/Resolved]

NARRATIVE: CASE EVENT DATE: 20190510
